FAERS Safety Report 5597352-6 (Version None)
Quarter: 2007Q4

REPORT INFORMATION
  Report Type: 
  Country: None (occurrence: None)
  Receive Date: 20071221
  Receipt Date: 20070908
  Transmission Date: 20080405
  Serious: No
  Sender: FDA-Public Use
  Company Number: SPV1-2007-04045

PATIENT
  Age: 8 Year
  Sex: Female
  Weight: 40.8 kg

DRUGS (3)
  1. VYVANSE [Suspect]
     Indication: ATTENTION DEFICIT/HYPERACTIVITY DISORDER
     Dosage: 30 MG, 1X/DAY:QD, ORAL
     Route: 048
     Dates: start: 20070901, end: 20070902
  2. ADDERALL XR 10 [Concomitant]
  3. MELATONIN (MELATONIN) [Concomitant]

REACTIONS (3)
  - ABNORMAL BEHAVIOUR [None]
  - INSOMNIA [None]
  - PSYCHOMOTOR HYPERACTIVITY [None]
